FAERS Safety Report 16551859 (Version 1)
Quarter: 2019Q3

REPORT INFORMATION
  Report Type: Spontaneous
  Country: FR (occurrence: FR)
  Receive Date: 20190710
  Receipt Date: 20190710
  Transmission Date: 20191004
  Serious: Yes (Other)
  Sender: FDA-Public Use
  Company Number: FR-MYLANLABS-2019M1063402

PATIENT
  Sex: Female

DRUGS (15)
  1. ETOPOSIDE. [Suspect]
     Active Substance: ETOPOSIDE
     Indication: STILL^S DISEASE
     Route: 065
  2. TOCILIZUMAB. [Suspect]
     Active Substance: TOCILIZUMAB
     Indication: STILL^S DISEASE
     Dosage: UNK
     Route: 050
  3. METHOTREXATE. [Suspect]
     Active Substance: METHOTREXATE
     Indication: STILL^S DISEASE
     Dosage: 20 MILLIGRAM/KILOGRAM, QW
     Route: 058
  4. ADALIMUMAB [Suspect]
     Active Substance: ADALIMUMAB
     Indication: STILL^S DISEASE
     Route: 065
  5. INFLIXIMAB [Suspect]
     Active Substance: INFLIXIMAB
     Indication: STILL^S DISEASE
     Dosage: 5 MILLIGRAM/KILOGRAM
     Route: 065
     Dates: start: 20160824
  6. METHYLPREDNISOLONE. [Suspect]
     Active Substance: METHYLPREDNISOLONE
     Indication: STILL^S DISEASE
     Dosage: 3 DAILY DOSE
     Route: 042
  7. INFLIXIMAB [Suspect]
     Active Substance: INFLIXIMAB
     Dosage: 10 MILLIGRAM/KILOGRAM
     Route: 065
     Dates: start: 20161021
  8. ANAKINRA [Suspect]
     Active Substance: ANAKINRA
     Indication: STILL^S DISEASE
     Route: 065
     Dates: start: 20161117
  9. TOCILIZUMAB. [Suspect]
     Active Substance: TOCILIZUMAB
     Dosage: 8 MILLIGRAM/KILOGRAM
     Route: 042
     Dates: start: 201608
  10. CANAKINUMAB. [Suspect]
     Active Substance: CANAKINUMAB
     Indication: STILL^S DISEASE
     Dosage: 150 MILLIGRAM, MONTHLY
     Route: 065
  11. SILTUXIMAB [Concomitant]
     Active Substance: SILTUXIMAB
     Indication: STILL^S DISEASE
     Dosage: 690 MG PER INFUSION
     Route: 041
     Dates: start: 201701
  12. PREDNISONE. [Suspect]
     Active Substance: PREDNISONE
     Indication: STILL^S DISEASE
     Dosage: 0.6 MG/KG OF BODY WEIGHT
     Route: 065
  13. TOCILIZUMAB. [Suspect]
     Active Substance: TOCILIZUMAB
     Dosage: 162 MILLIGRAM, QW
     Route: 058
  14. ANAKINRA [Suspect]
     Active Substance: ANAKINRA
     Dosage: 200 MILLIGRAM, QW
     Route: 065
     Dates: start: 201612
  15. ANAKINRA [Suspect]
     Active Substance: ANAKINRA
     Dosage: 300 MILLIGRAM, QD
     Route: 065
     Dates: start: 201612

REACTIONS (4)
  - Cushing^s syndrome [Unknown]
  - Maternal exposure during pregnancy [Recovered/Resolved]
  - Normal newborn [Recovered/Resolved]
  - Drug ineffective [Unknown]
